FAERS Safety Report 12229495 (Version 2)
Quarter: 2016Q3

REPORT INFORMATION
  Report Type: Spontaneous
  Country: CA (occurrence: CA)
  Receive Date: 20160401
  Receipt Date: 20160715
  Transmission Date: 20161109
  Serious: Yes (Death, Hospitalization, Other)
  Sender: FDA-Public Use
  Company Number: CA-009507513-1603CAN011912

PATIENT
  Age: 57 Year
  Sex: Male

DRUGS (3)
  1. TEMODAL [Suspect]
     Active Substance: TEMOZOLOMIDE
     Dosage: 80 MG DAILY
     Route: 048
     Dates: start: 20160324, end: 2016
  2. TEMODAL [Suspect]
     Active Substance: TEMOZOLOMIDE
     Indication: GLIOBLASTOMA MULTIFORME
     Dosage: HIGHER DOSE, UNK
     Route: 048
     Dates: start: 201509, end: 201601
  3. TEMODAL [Suspect]
     Active Substance: TEMOZOLOMIDE
     Dosage: 100 MG, UNK
     Route: 048
     Dates: start: 201601, end: 20160323

REACTIONS (4)
  - Neoplasm recurrence [Unknown]
  - Blood test abnormal [Unknown]
  - Post procedural complication [Fatal]
  - Surgery [Fatal]

NARRATIVE: CASE EVENT DATE: 2016
